FAERS Safety Report 19581188 (Version 5)
Quarter: 2025Q1

REPORT INFORMATION
  Report Type: Report from Study
  Country: ES (occurrence: ES)
  Receive Date: 20210719
  Receipt Date: 20250325
  Transmission Date: 20250409
  Serious: Yes (Hospitalization, Other)
  Sender: TAKEDA
  Company Number: ES-SHIRE-ES202022362

PATIENT
  Age: 52 Year
  Sex: Male

DRUGS (16)
  1. TEDUGLUTIDE [Suspect]
     Active Substance: TEDUGLUTIDE
     Indication: Short-bowel syndrome
     Dosage: 3.6 MILLIGRAM, QD
     Dates: start: 20190130, end: 20200620
  2. TEDUGLUTIDE [Suspect]
     Active Substance: TEDUGLUTIDE
     Dosage: 3.6 MILLIGRAM, QD
     Dates: start: 20200627, end: 20210127
  3. TEDUGLUTIDE [Suspect]
     Active Substance: TEDUGLUTIDE
  4. TEDUGLUTIDE [Suspect]
     Active Substance: TEDUGLUTIDE
  5. CYANOCOBALAMIN [Concomitant]
     Active Substance: CYANOCOBALAMIN
     Indication: Vitamin B12 deficiency
  6. ASPIRIN [Concomitant]
     Active Substance: ASPIRIN
     Indication: Trombidiasis
     Dosage: 100 MILLIGRAM, QD
     Dates: start: 20190226
  7. CHOLECALCIFEROL [Concomitant]
     Active Substance: CHOLECALCIFEROL
     Indication: Vitamin D deficiency
     Dosage: 25000 INTERNATIONAL UNIT, 1/WEEK
     Dates: start: 20201111
  8. CLAVULANIC ACID [Concomitant]
     Active Substance: CLAVULANIC ACID
     Indication: Cholangitis acute
     Dosage: 875 MILLIGRAM, TID
     Dates: start: 20200625
  9. Magnogene [Concomitant]
     Indication: Magnesium deficiency
     Dosage: 53 MILLIGRAM, TID
     Dates: start: 20230328
  10. DILTIAZEM [Concomitant]
     Active Substance: DILTIAZEM
     Indication: Proctalgia
     Dosage: 1 DOSAGE FORM, TID
     Dates: start: 20220705
  11. Anso [Concomitant]
     Indication: Haemorrhoids
     Dosage: 1 DOSAGE FORM, TID
     Dates: start: 20220728
  12. METRONIDAZOLE [Concomitant]
     Active Substance: METRONIDAZOLE
     Indication: Gastrointestinal microorganism overgrowth
     Dosage: 500 MILLIGRAM, TID
     Dates: start: 20220901
  13. GEMFIBROZIL [Concomitant]
     Active Substance: GEMFIBROZIL
     Indication: Dyslipidaemia
     Dosage: 600 MILLIGRAM, QD
     Dates: start: 20140811
  14. CALCIUM CARBONATE\CHOLECALCIFEROL [Concomitant]
     Active Substance: CALCIUM CARBONATE\CHOLECALCIFEROL
     Indication: Osteoporosis
     Dosage: 1000 MILLIGRAM, QD
     Dates: start: 20140923
  15. OMEPRAZOLE [Concomitant]
     Active Substance: OMEPRAZOLE
     Indication: Ulcer
     Dosage: 20 MILLIGRAM, QD
     Dates: start: 20210825
  16. Auxina a masiva [Concomitant]
     Indication: Vitamin A deficiency

REACTIONS (3)
  - Cholangitis acute [Recovered/Resolved]
  - Large intestine polyp [Recovered/Resolved]
  - COVID-19 [Recovered/Resolved]

NARRATIVE: CASE EVENT DATE: 20200620
